FAERS Safety Report 18834102 (Version 1)
Quarter: 2021Q1

REPORT INFORMATION
  Report Type: Spontaneous
  Country: US (occurrence: US)
  Receive Date: 20210203
  Receipt Date: 20210203
  Transmission Date: 20210419
  Serious: No
  Sender: FDA-Public Use
  Company Number: US-ALLERGAN-2025974US

PATIENT
  Age: 67 Year
  Sex: Female

DRUGS (4)
  1. VITAMIN B12 [Concomitant]
     Active Substance: CYANOCOBALAMIN
  2. MULTIVITAMINS [Concomitant]
     Active Substance: VITAMINS
  3. BOTOX COSMETIC [Suspect]
     Active Substance: ONABOTULINUMTOXINA
     Dosage: 12.5 UNITS, SINGLE
     Dates: start: 20200514, end: 20200514
  4. BOTOX COSMETIC [Suspect]
     Active Substance: ONABOTULINUMTOXINA
     Indication: SKIN WRINKLING
     Dosage: 12.5 UNITS, SINGLE
     Dates: start: 20200624, end: 20200624

REACTIONS (1)
  - Drug ineffective [Unknown]
